FAERS Safety Report 23040481 (Version 1)
Quarter: 2023Q4

REPORT INFORMATION
  Report Type: Spontaneous
  Country: US (occurrence: None)
  Receive Date: 20231006
  Receipt Date: 20231006
  Transmission Date: 20240110
  Serious: Yes (Hospitalization)
  Sender: FDA-Public Use
  Company Number: None

PATIENT
  Age: 36 Year
  Sex: Female
  Weight: 72.57 kg

DRUGS (2)
  1. GABAPENTIN [Suspect]
     Active Substance: GABAPENTIN
     Indication: Muscle spasms
     Dosage: FREQUENCY : AT BEDTIME;?
     Route: 048
     Dates: start: 20220823, end: 20220911
  2. GABAPENTIN [Suspect]
     Active Substance: GABAPENTIN
     Indication: Tremor

REACTIONS (7)
  - Disorientation [None]
  - Pain [None]
  - Hypoaesthesia [None]
  - Confusional state [None]
  - Dizziness [None]
  - Fatigue [None]
  - Feeling abnormal [None]

NARRATIVE: CASE EVENT DATE: 20220911
